FAERS Safety Report 7285687-0 (Version None)
Quarter: 2011Q1

REPORT INFORMATION
  Report Type: 
  Country: None (occurrence: None)
  Receive Date: 20110210
  Receipt Date: 20110203
  Transmission Date: 20110831
  Serious: Yes (Other)
  Sender: FDA-Public Use
  Company Number: B0698404A

PATIENT
  Sex: Male

DRUGS (4)
  1. RELENZA [Suspect]
     Indication: INFLUENZA
     Dosage: 20MG PER DAY
     Route: 055
     Dates: start: 20110124
  2. CALONAL [Concomitant]
     Route: 065
     Dates: start: 20110124
  3. METHISTA [Concomitant]
     Dosage: 4IUAX PER DAY
     Route: 048
     Dates: start: 20110124
  4. HUSCODE [Concomitant]
     Dosage: 4IUAX PER DAY
     Route: 048
     Dates: start: 20110124

REACTIONS (4)
  - ABNORMAL BEHAVIOUR [None]
  - PORIOMANIA [None]
  - HALLUCINATION [None]
  - DELIRIUM [None]
